FAERS Safety Report 5424377-3 (Version None)
Quarter: 2007Q3

REPORT INFORMATION
  Report Type: 
  Country: None (occurrence: None)
  Receive Date: 20070823
  Receipt Date: 20070813
  Transmission Date: 20080115
  Serious: No
  Sender: FDA-Public Use
  Company Number: DE-BAXTER-2007BH007090

PATIENT
  Sex: Male

DRUGS (1)
  1. FACTOR IX COMPLEX [Suspect]
     Indication: HAEMOPHILIA
     Dosage: DOSE UNIT:UNKNOWN
     Route: 065

REACTIONS (1)
  - HEPATITIS C VIRUS [None]
